FAERS Safety Report 13335992 (Version 1)
Quarter: 2017Q1

REPORT INFORMATION
  Report Type: Spontaneous
  Country: US (occurrence: US)
  Receive Date: 20170314
  Receipt Date: 20170314
  Transmission Date: 20170428
  Serious: Yes (Other)
  Sender: FDA-Public Use
  Company Number: US-MALLINCKRODT-T201700903

PATIENT

DRUGS (3)
  1. PREDNISONE. [Concomitant]
     Active Substance: PREDNISONE
     Dosage: 60 MG
  2. H.P. ACTHAR [Suspect]
     Active Substance: CORTICOTROPIN
     Indication: SARCOIDOSIS
     Route: 065
  3. PREDNISONE. [Concomitant]
     Active Substance: PREDNISONE
     Dosage: 20, 40

REACTIONS (7)
  - Hypercalcaemia [Unknown]
  - Depression [Unknown]
  - Insomnia [Unknown]
  - Suicidal ideation [Unknown]
  - Blood creatinine increased [Unknown]
  - Anxiety [Unknown]
  - Mood altered [Unknown]
